FAERS Safety Report 25205423 (Version 1)
Quarter: 2025Q2

REPORT INFORMATION
  Report Type: Spontaneous
  Country: CN (occurrence: CN)
  Receive Date: 20250417
  Receipt Date: 20250417
  Transmission Date: 20250717
  Serious: Yes (Life-Threatening, Hospitalization, Other)
  Sender: BAXTER
  Company Number: None

PATIENT
  Age: 49 Year
  Sex: Female
  Weight: 85 kg

DRUGS (10)
  1. CYCLOPHOSPHAMIDE [Suspect]
     Active Substance: CYCLOPHOSPHAMIDE
     Indication: Breast cancer female
     Dosage: 1.1 G, QD, IVGTT
     Route: 041
     Dates: start: 20250316, end: 20250316
  2. DEXTROSE [Suspect]
     Active Substance: DEXTROSE MONOHYDRATE
     Route: 041
     Dates: start: 20250315
  3. DOCETAXEL [Suspect]
     Active Substance: DOCETAXEL
     Indication: Breast cancer female
     Dosage: 20 MG, QD, IVGTT ONCE
     Route: 041
     Dates: start: 20250315, end: 20250315
  4. DOCETAXEL [Suspect]
     Active Substance: DOCETAXEL
     Dosage: 120 MG, QD, IVGTT ONCE
     Route: 041
     Dates: start: 20250315, end: 20250315
  5. EPIRUBICIN [Suspect]
     Active Substance: EPIRUBICIN
     Indication: Breast cancer female
     Dosage: 180 MG, QD
     Route: 041
     Dates: start: 20250316, end: 20250316
  6. SODIUM CHLORIDE [Suspect]
     Active Substance: SODIUM CHLORIDE
     Indication: Medication dilution
     Dosage: 500 ML, QD + DOCETAXEL INJECTION 140MG IVGTT ONCE
     Route: 041
     Dates: start: 20250315, end: 20250315
  7. SODIUM CHLORIDE [Suspect]
     Active Substance: SODIUM CHLORIDE
     Dosage: 100 ML, QD + DOCETAXEL INJECTION 140MG IVGTT ONCE
     Route: 041
     Dates: start: 20250315, end: 20250315
  8. SODIUM CHLORIDE [Suspect]
     Active Substance: SODIUM CHLORIDE
     Dosage: 100 ML, QD + CYCLOPHOSPHAMIDE INJECTION 1.1G IVGTT ONCE
     Route: 041
     Dates: start: 20250316, end: 20250316
  9. SODIUM CHLORIDE [Suspect]
     Active Substance: SODIUM CHLORIDE
     Dosage: 100 ML, QD + EPIRUBICIN INJECTION 180MG IVGTT ONCE
     Route: 041
     Dates: start: 20250316, end: 20250316
  10. CARBOPLATIN [Concomitant]
     Active Substance: CARBOPLATIN
     Indication: Chemotherapy
     Dosage: 700 MG, QD, IVGTT ONCE
     Route: 041
     Dates: start: 20250315

REACTIONS (6)
  - Myelosuppression [Recovering/Resolving]
  - Swelling [Unknown]
  - Chest discomfort [Unknown]
  - Oxygen saturation decreased [Unknown]
  - Abdominal pain lower [Unknown]
  - Flushing [Unknown]

NARRATIVE: CASE EVENT DATE: 20250315
